FAERS Safety Report 13918422 (Version 1)
Quarter: 2017Q3

REPORT INFORMATION
  Report Type: Spontaneous
  Country: US (occurrence: US)
  Receive Date: 20170829
  Receipt Date: 20170829
  Transmission Date: 20171127
  Serious: No
  Sender: FDA-Public Use
  Company Number: US-SA-2016SA201070

PATIENT
  Age: 66 Year
  Sex: Female

DRUGS (12)
  1. AVAPRO [Suspect]
     Active Substance: IRBESARTAN
     Route: 065
  2. HYDROCHLOROTHIAZIDE. [Suspect]
     Active Substance: HYDROCHLOROTHIAZIDE
     Route: 065
  3. PLETAL [Concomitant]
     Active Substance: CILOSTAZOL
     Route: 048
     Dates: start: 20160119
  4. GABAPENTIN. [Concomitant]
     Active Substance: GABAPENTIN
     Route: 048
     Dates: start: 20160606
  5. METOPROLOL SUCCINATE. [Concomitant]
     Active Substance: METOPROLOL SUCCINATE
     Route: 048
     Dates: start: 20140820
  6. DIOVAN [Suspect]
     Active Substance: VALSARTAN
     Route: 065
  7. NIACIN. [Concomitant]
     Active Substance: NIACIN
     Route: 048
  8. ASPIRIN. [Concomitant]
     Active Substance: ASPIRIN
     Route: 048
  9. LYRICA [Concomitant]
     Active Substance: PREGABALIN
     Route: 048
     Dates: start: 20160805
  10. PLAVIX [Concomitant]
     Active Substance: CLOPIDOGREL BISULFATE
     Route: 048
  11. FISH OIL [Concomitant]
     Active Substance: FISH OIL
     Route: 048
  12. TOPROL XL [Concomitant]
     Active Substance: METOPROLOL SUCCINATE
     Route: 048

REACTIONS (1)
  - Paraesthesia [Unknown]
